FAERS Safety Report 7487228-1 (Version None)
Quarter: 2011Q2

REPORT INFORMATION
  Report Type: 
  Country: None (occurrence: None)
  Receive Date: 20110518
  Receipt Date: 20110429
  Transmission Date: 20111010
  Serious: Yes (Hospitalization, Other)
  Sender: FDA-Public Use
  Company Number: US-BAYER-200928612NA

PATIENT
  Age: 18 Year
  Sex: Female
  Weight: 120.18 kg

DRUGS (8)
  1. IBUPROFEN [Concomitant]
  2. YASMIN [Suspect]
     Indication: ACNE
  3. YAZ [Suspect]
     Indication: ACNE
     Dosage: UNK
     Dates: start: 20060401, end: 20090315
  4. YASMIN [Suspect]
     Indication: DYSMENORRHOEA
  5. YASMIN [Suspect]
     Indication: MENORRHAGIA
  6. NEXIUM [Concomitant]
     Dosage: 40 MG, CONT
     Route: 048
  7. YAZ [Suspect]
     Indication: PREMENSTRUAL SYNDROME
     Dosage: 1 DF (DAILY DOSE), QD, ORAL
     Route: 048
     Dates: start: 20080301, end: 20080609
  8. YASMIN [Suspect]
     Indication: PREMENSTRUAL SYNDROME
     Dosage: UNK
     Dates: start: 20060301, end: 20060331

REACTIONS (9)
  - GALLBLADDER DISORDER [None]
  - NAUSEA [None]
  - CHOLECYSTITIS CHRONIC [None]
  - VOMITING [None]
  - ABDOMINAL DISCOMFORT [None]
  - ABDOMINAL PAIN UPPER [None]
  - DEEP VEIN THROMBOSIS [None]
  - CHOLECYSTITIS ACUTE [None]
  - CHOLELITHIASIS [None]
